FAERS Safety Report 8807190 (Version 1)
Quarter: 2012Q4

REPORT INFORMATION
  Report Type: 
  Country: US (occurrence: US)
  Receive Date: 20120925
  Receipt Date: 20120925
  Transmission Date: 20130627
  Serious: Yes (Other)
  Sender: FDA-Public Use
  Company Number: US-PFIZER INC-2012235122

PATIENT
  Age: 63 Year
  Sex: Female
  Weight: 59.86 kg

DRUGS (7)
  1. LIPITOR [Suspect]
     Indication: BLOOD CHOLESTEROL INCREASED
     Dosage: 40 mg, daily
     Dates: start: 1999
  2. GLIBENCLAMIDE [Suspect]
     Indication: DIABETES MELLITUS
     Dosage: 10 mg in the morning and 5 mg in the evening, 2x/day
  3. ULORIC [Suspect]
     Indication: BLOOD URIC ACID INCREASED
     Dosage: UNK
  4. METFORMIN HYDROCHLORIDE [Suspect]
     Indication: DIABETES MELLITUS
     Dosage: UNK
  5. NEXIUM [Concomitant]
     Indication: GASTROOESOPHAGEAL REFLUX DISEASE
     Dosage: UNK
  6. METOPROLOL [Concomitant]
     Indication: CARDIAC DISORDER
     Dosage: UNK
  7. PERCOCET [Concomitant]
     Dosage: UNK

REACTIONS (3)
  - Skin cancer [Unknown]
  - Blood glucose increased [Unknown]
  - Blood uric acid increased [Unknown]
